FAERS Safety Report 15665834 (Version 1)
Quarter: 2018Q4

REPORT INFORMATION
  Report Type: Spontaneous
  Country: US (occurrence: US)
  Receive Date: 20181128
  Receipt Date: 20181128
  Transmission Date: 20190205
  Serious: No
  Sender: FDA-Public Use
  Company Number: US-TARO-2017TAR00940

PATIENT
  Age: 63 Year
  Sex: Female
  Weight: 82.54 kg

DRUGS (2)
  1. CARBAMAZEPINE TABLETS CHEWABLE USP 100MG [Suspect]
     Active Substance: CARBAMAZEPINE
     Indication: TRIGEMINAL NEURALGIA
     Dosage: 100 MG, 2X/DAY
     Route: 048
     Dates: start: 2015
  2. MULTIVITAMIN [Concomitant]
     Active Substance: VITAMINS
     Dosage: 2 OR 3 DAYS A WEEK

REACTIONS (3)
  - Product quality issue [Not Recovered/Not Resolved]
  - Hypoaesthesia [Not Recovered/Not Resolved]
  - Drug ineffective [Not Recovered/Not Resolved]

NARRATIVE: CASE EVENT DATE: 201710
